FAERS Safety Report 25278580 (Version 1)
Quarter: 2025Q2

REPORT INFORMATION
  Report Type: Spontaneous
  Country: US (occurrence: US)
  Receive Date: 20250507
  Receipt Date: 20250507
  Transmission Date: 20250717
  Serious: Yes (Other)
  Sender: PFIZER
  Company Number: US-BRISTOL-MYERS SQUIBB COMPANY-2025-062385

PATIENT
  Age: 72 Year
  Sex: Female
  Weight: 58.51 kg

DRUGS (27)
  1. ELIQUIS [Suspect]
     Active Substance: APIXABAN
  2. POTASSIUM CHLORIDE [Suspect]
     Active Substance: POTASSIUM CHLORIDE
  3. LEVOTHYROXINE SODIUM [Suspect]
     Active Substance: LEVOTHYROXINE SODIUM
  4. AZITHROMYCIN [Suspect]
     Active Substance: AZITHROMYCIN
  5. ORENITRAM [Suspect]
     Active Substance: TREPROSTINIL
     Indication: Pulmonary arterial hypertension
     Dosage: 5 MG, 3X/DAY
     Route: 048
     Dates: start: 20210304
  6. ORENITRAM [Suspect]
     Active Substance: TREPROSTINIL
     Route: 048
  7. ADEMPAS [Suspect]
     Active Substance: RIOCIGUAT
  8. CLARITIN [Suspect]
     Active Substance: LORATADINE
     Indication: Nasal congestion
  9. IMODIUM AD [Suspect]
     Active Substance: LOPERAMIDE HYDROCHLORIDE
  10. AMOXICILLIN TRIHYDRATE [Suspect]
     Active Substance: AMOXICILLIN
  11. JARDIANCE [Suspect]
     Active Substance: EMPAGLIFLOZIN
  12. ERYTHROCIN STEARATE [Suspect]
     Active Substance: ERYTHROMYCIN STEARATE
  13. CEFDINIR [Suspect]
     Active Substance: CEFDINIR
  14. ACIDOPHILUS [Suspect]
     Active Substance: LACTOBACILLUS ACIDOPHILUS
  15. FLONASE ALLERGY RELIEF [Suspect]
     Active Substance: FLUTICASONE PROPIONATE
     Indication: Nasal congestion
  16. ALENDRONATE SODIUM [Suspect]
     Active Substance: ALENDRONATE SODIUM
  17. ATORVASTATIN CALCIUM [Suspect]
     Active Substance: ATORVASTATIN CALCIUM
  18. HYDROXYUREA [Suspect]
     Active Substance: HYDROXYUREA
  19. VITAMIN B12 [Suspect]
     Active Substance: CYANOCOBALAMIN
  20. ZINGIBER OFFICINALE (GINGER) ROOT [Suspect]
     Active Substance: GINGER
  21. BIFIDOBACTERIUM ANIMALIS LACTIS [Suspect]
     Active Substance: BIFIDOBACTERIUM ANIMALIS LACTIS
  22. TORSEMIDE [Suspect]
     Active Substance: TORSEMIDE
  23. SIMETHICONE (DIMETHICONE) [Suspect]
     Active Substance: DIMETHICONE
  24. MUCINEX [Suspect]
     Active Substance: GUAIFENESIN
  25. AMBRISENTAN [Suspect]
     Active Substance: AMBRISENTAN
  26. FOLIC ACID\IRON [Suspect]
     Active Substance: FOLIC ACID\IRON
  27. ERGOCALCIFEROL [Suspect]
     Active Substance: ERGOCALCIFEROL

REACTIONS (7)
  - Lower respiratory tract infection [Recovering/Resolving]
  - Cardiac flutter [Unknown]
  - Nasopharyngitis [Not Recovered/Not Resolved]
  - Nausea [Unknown]
  - Nasal congestion [Unknown]
  - Hot flush [Unknown]
  - Hyperhidrosis [Unknown]

NARRATIVE: CASE EVENT DATE: 20250301
